FAERS Safety Report 7080852-X (Version None)
Quarter: 2010Q4

REPORT INFORMATION
  Report Type: 
  Country: None (occurrence: None)
  Receive Date: 20101103
  Receipt Date: 20101022
  Transmission Date: 20110411
  Serious: Yes (Hospitalization, Other)
  Sender: FDA-Public Use
  Company Number: US-PFIZER INC-2010135587

PATIENT
  Sex: Female
  Weight: 145 kg

DRUGS (1)
  1. LYRICA [Suspect]
     Indication: FIBROMYALGIA
     Dosage: 50 MG, 1X/DAY
     Route: 048
     Dates: start: 20100901

REACTIONS (7)
  - ASTHENIA [None]
  - ASTHMA [None]
  - BLOOD SODIUM DECREASED [None]
  - DYSPNOEA [None]
  - MEMORY IMPAIRMENT [None]
  - PRURITUS [None]
  - WEIGHT DECREASED [None]
